FAERS Safety Report 12519090 (Version 1)
Quarter: 2016Q2

REPORT INFORMATION
  Report Type: Spontaneous
  Country: DE (occurrence: DE)
  Receive Date: 20160630
  Receipt Date: 20160630
  Transmission Date: 20160815
  Serious: Yes (Other)
  Sender: FDA-Public Use
  Company Number: PHHY2016DE087523

PATIENT
  Age: 65 Year
  Sex: Male

DRUGS (1)
  1. NILOTINIB [Suspect]
     Active Substance: NILOTINIB
     Indication: CHRONIC MYELOID LEUKAEMIA
     Dosage: UNK
     Route: 065
     Dates: start: 200612, end: 201102

REACTIONS (5)
  - Pneumonia [Unknown]
  - Pulmonary embolism [Unknown]
  - Right ventricular failure [Recovered/Resolved]
  - Pericarditis constrictive [Unknown]
  - Pericardial effusion [Unknown]

NARRATIVE: CASE EVENT DATE: 200904
